FAERS Safety Report 14654161 (Version 2)
Quarter: 2018Q2

REPORT INFORMATION
  Report Type: Spontaneous
  Country: US (occurrence: US)
  Receive Date: 20180319
  Receipt Date: 20180430
  Transmission Date: 20180711
  Serious: No
  Sender: FDA-Public Use
  Company Number: US-JNJFOC-20180308361

PATIENT
  Sex: Female

DRUGS (3)
  1. ATIVAN [Concomitant]
     Active Substance: LORAZEPAM
     Indication: EPILEPSY
     Route: 065
     Dates: start: 1988
  2. CONCERTA [Suspect]
     Active Substance: METHYLPHENIDATE HYDROCHLORIDE
     Indication: SEIZURE
     Route: 048
  3. TEGRETOL [Concomitant]
     Active Substance: CARBAMAZEPINE
     Indication: EPILEPSY
     Route: 065
     Dates: start: 1988

REACTIONS (2)
  - Off label use [Unknown]
  - Product use in unapproved indication [Unknown]
